FAERS Safety Report 9163367 (Version 6)
Quarter: 2014Q1

REPORT INFORMATION
  Report Type: Report from Study
  Country: BE (occurrence: BE)
  Receive Date: 20130314
  Receipt Date: 20140227
  Transmission Date: 20141002
  Serious: Yes (Hospitalization)
  Sender: FDA-Public Use
  Company Number: BE-ROCHE-1200875

PATIENT
  Age: 67 Year
  Sex: Female
  Weight: 59 kg

DRUGS (13)
  1. PEG-INTERFERON ALFA 2A [Suspect]
     Indication: HEPATITIS C
     Route: 058
     Dates: start: 20121127, end: 20130307
  2. RIBAVIRIN [Suspect]
     Indication: HEPATITIS C
     Route: 048
     Dates: start: 20121218, end: 20130307
  3. BOCEPREVIR [Suspect]
     Indication: HEPATITIS C
     Route: 048
     Dates: start: 20121226, end: 20130307
  4. L-THYROXINE [Concomitant]
     Indication: HYPOTHYROIDISM
     Route: 048
  5. OMEPRAZOLE [Concomitant]
     Indication: OESOPHAGITIS
     Route: 048
  6. AMLOR [Concomitant]
     Indication: HYPERTENSION
     Route: 048
  7. SPIRONOLACTONE [Concomitant]
     Indication: HYPERTENSION
     Route: 048
  8. D-CURE [Concomitant]
     Route: 048
  9. DHEA [Concomitant]
     Route: 048
  10. METFORMIN [Concomitant]
     Indication: TYPE 2 DIABETES MELLITUS
     Route: 048
  11. D-CURE [Concomitant]
  12. ATARAX (BELGIUM) [Concomitant]
  13. DERMOVATE [Concomitant]

REACTIONS (2)
  - Bronchopneumonia [Recovered/Resolved]
  - Atrioventricular block [Recovered/Resolved]
